FAERS Safety Report 15702965 (Version 1)
Quarter: 2018Q4

REPORT INFORMATION
  Report Type: Spontaneous
  Country: US (occurrence: US)
  Receive Date: 20181208
  Receipt Date: 20181208
  Transmission Date: 20190205
  Serious: Yes (Other)
  Sender: FDA-Public Use
  Company Number: None

PATIENT
  Age: 25 Year
  Sex: Female
  Weight: 49.5 kg

DRUGS (1)
  1. DEXTROAMPHETAMINE SULPHATE 10MG - TW  O TABLETS BID [Suspect]
     Active Substance: DEXTROAMPHETAMINE SULFATE
     Indication: ATTENTION DEFICIT/HYPERACTIVITY DISORDER
     Dosage: ?          QUANTITY:120 TABLET(S);?
     Route: 048
     Dates: start: 20181108, end: 20181207

REACTIONS (8)
  - Headache [None]
  - Eye colour change [None]
  - Product substitution issue [None]
  - Burning sensation [None]
  - Musculoskeletal pain [None]
  - Abdominal distension [None]
  - Discomfort [None]
  - Urine abnormality [None]

NARRATIVE: CASE EVENT DATE: 20181108
